FAERS Safety Report 10743644 (Version 2)
Quarter: 2015Q1

REPORT INFORMATION
  Report Type: Spontaneous
  Country: US (occurrence: US)
  Receive Date: 20150128
  Receipt Date: 20150303
  Transmission Date: 20150721
  Serious: No
  Sender: FDA-Public Use
  Company Number: US-ASTRAZENECA-2015SE06963

PATIENT
  Age: 22253 Day
  Sex: Female
  Weight: 79.4 kg

DRUGS (12)
  1. ATORVASTAIN [Concomitant]
     Indication: BLOOD CHOLESTEROL ABNORMAL
     Route: 048
     Dates: start: 201408
  2. PRAVASTATIN [Concomitant]
     Active Substance: PRAVASTATIN\PRAVASTATIN SODIUM
     Route: 048
  3. GABAPENTIN. [Concomitant]
     Active Substance: GABAPENTIN
     Indication: DIABETIC NEUROPATHY
     Route: 048
  4. PULMICORT FLEXHALER [Suspect]
     Active Substance: BUDESONIDE
     Indication: CHRONIC OBSTRUCTIVE PULMONARY DISEASE
     Dosage: 90 UG, 1 PUFF, TWO TIMES A DAY
     Route: 055
     Dates: start: 20150108
  5. OMEPRAZOLE. [Suspect]
     Active Substance: OMEPRAZOLE
     Indication: ABDOMINAL DISCOMFORT
     Route: 048
     Dates: start: 2013
  6. JANUMENT [Concomitant]
     Indication: DIABETES MELLITUS
     Route: 048
  7. OMEGA 3 PRESCRIPTION STRENGTH [Concomitant]
     Route: 048
     Dates: start: 201408
  8. MELOXICAM. [Concomitant]
     Active Substance: MELOXICAM
     Indication: INTERVERTEBRAL DISC DEGENERATION
     Route: 048
     Dates: start: 2013
  9. GENERIC OMEGA 3 [Concomitant]
     Route: 048
  10. PULMICORT FLEXHALER [Suspect]
     Active Substance: BUDESONIDE
     Indication: ASTHMA
     Dosage: 90 UG, 1 PUFF, TWO TIMES A DAY
     Route: 055
     Dates: start: 20150108
  11. SERTRALINE [Concomitant]
     Active Substance: SERTRALINE HYDROCHLORIDE
     Indication: DEPRESSION
     Route: 048
  12. ZERTIA [Concomitant]
     Indication: BLOOD CHOLESTEROL ABNORMAL
     Route: 048
     Dates: start: 201408

REACTIONS (3)
  - Drug ineffective [Not Recovered/Not Resolved]
  - Dyspnoea [Unknown]
  - Intentional product misuse [Unknown]

NARRATIVE: CASE EVENT DATE: 20150108
